FAERS Safety Report 9209108 (Version 1)
Quarter: 2013Q2

REPORT INFORMATION
  Report Type: Spontaneous
  Country: US (occurrence: None)
  Receive Date: 20130403
  Receipt Date: 20130403
  Transmission Date: 20140414
  Serious: Yes (Death)
  Sender: FDA-Public Use
  Company Number: None

PATIENT
  Age: 77 Year
  Sex: Female
  Weight: 77 kg

DRUGS (1)
  1. XARELTO 20MG JANSSEN [Suspect]
     Route: 048
     Dates: start: 20130222, end: 20130225

REACTIONS (4)
  - Pulmonary haemorrhage [None]
  - Pneumonia [None]
  - Cardio-respiratory arrest [None]
  - Pulmonary alveolar haemorrhage [None]
